FAERS Safety Report 7982467-5 (Version None)
Quarter: 2011Q4

REPORT INFORMATION
  Report Type: 
  Country: None (occurrence: None)
  Receive Date: 20111214
  Receipt Date: 20111214
  Transmission Date: 20120403
  Serious: Yes (Hospitalization)
  Sender: FDA-Public Use
  Company Number: None

PATIENT
  Age: 73 Year
  Sex: Male
  Weight: 93 kg

DRUGS (1)
  1. ARSENIC TRIOXIDE [Suspect]
     Indication: LUNG NEOPLASM MALIGNANT
     Dosage: 30MG 4 DAYS A WEEK IV
     Route: 042
     Dates: start: 20111207, end: 20111210

REACTIONS (3)
  - ANTIPHOSPHOLIPID SYNDROME [None]
  - DYSPNOEA [None]
  - PNEUMONIA [None]
